FAERS Safety Report 19072543 (Version 1)
Quarter: 2021Q1

REPORT INFORMATION
  Report Type: Spontaneous
  Country: US (occurrence: US)
  Receive Date: 20210330
  Receipt Date: 20210330
  Transmission Date: 20210420
  Serious: No
  Sender: FDA-Public Use
  Company Number: None

PATIENT
  Age: 62 Year
  Sex: Female
  Weight: 63 kg

DRUGS (2)
  1. MULTIVIT [Concomitant]
     Active Substance: VITAMINS
  2. ARMOUR THYROID [Suspect]
     Active Substance: THYROID, PORCINE
     Indication: HYPOTHYROIDISM
     Dosage: ?          QUANTITY:30 TABLET(S);?
     Route: 048
     Dates: start: 20200915, end: 20210316

REACTIONS (6)
  - Drug ineffective [None]
  - Sleep disorder [None]
  - Alopecia [None]
  - Body temperature decreased [None]
  - Nail disorder [None]
  - Fatigue [None]

NARRATIVE: CASE EVENT DATE: 20210301
